FAERS Safety Report 6607256-5 (Version None)
Quarter: 2010Q1

REPORT INFORMATION
  Report Type: 
  Country: None (occurrence: None)
  Receive Date: 20100227
  Receipt Date: 20100216
  Transmission Date: 20100710
  Serious: Yes (Other)
  Sender: FDA-Public Use
  Company Number: US-JNJFOC-20100207444

PATIENT
  Age: 67 Year
  Sex: Female
  Weight: 56.7 kg

DRUGS (3)
  1. TYLENOL EXTRA STRENGHT RAPID RELEASE [Suspect]
     Route: 048
  2. TYLENOL EXTRA STRENGHT RAPID RELEASE [Suspect]
     Indication: PAIN
     Route: 048
  3. ROLAIDS [Suspect]
     Indication: ABDOMINAL DISCOMFORT

REACTIONS (7)
  - ABDOMINAL PAIN UPPER [None]
  - DIARRHOEA [None]
  - NAUSEA [None]
  - PRODUCT QUALITY ISSUE [None]
  - URTICARIA [None]
  - VOMITING [None]
  - WEIGHT DECREASED [None]
